FAERS Safety Report 22344246 (Version 1)
Quarter: 2023Q2

REPORT INFORMATION
  Report Type: Spontaneous
  Country: US (occurrence: None)
  Receive Date: 20230517
  Receipt Date: 20230517
  Transmission Date: 20230721
  Serious: Yes (Other)
  Sender: FDA-Public Use
  Company Number: None

PATIENT
  Age: 8 Year
  Sex: Male

DRUGS (9)
  1. PHOSPHOLINE IODIDE OPHTHALMIC [Suspect]
     Active Substance: ECHOTHIOPHATE IODIDE
     Indication: Developmental glaucoma
     Dosage: FREQUENCY : TWICE A DAY;  INTO LEFT EYE?
     Route: 047
     Dates: start: 20230425
  2. ATROPINE SUL SOL OP [Concomitant]
  3. BRIMONIDINE SOL [Concomitant]
  4. COSOPT SOL [Concomitant]
  5. LATANOPROST SOL [Concomitant]
  6. MOXIFLXOACIN SOL HCL [Concomitant]
  7. PREDNISOLONE SUS OP [Concomitant]
  8. RESTASIS EMU OP [Concomitant]
  9. TOBRADEX ST SUS [Concomitant]

REACTIONS (5)
  - Instillation site irritation [None]
  - Instillation site erythema [None]
  - Product quality issue [None]
  - Therapy interrupted [None]
  - Drug intolerance [None]

NARRATIVE: CASE EVENT DATE: 20230401
